FAERS Safety Report 4718916-5 (Version None)
Quarter: 2005Q3

REPORT INFORMATION
  Report Type: 
  Country: None (occurrence: None)
  Receive Date: 20050719
  Receipt Date: 20050704
  Transmission Date: 20060218
  Serious: Yes (Hospitalization)
  Sender: FDA-Public Use
  Company Number: 2005099417

PATIENT
  Age: 58 Year
  Sex: Male

DRUGS (4)
  1. ANSATIPINE (RIFABUTIN) [Suspect]
     Indication: PULMONARY TUBERCULOSIS
     Dosage: ORAL
     Route: 048
     Dates: start: 20041221, end: 20050117
  2. DEXAMBUTOL (ETHAMBUTOL DIHYDROCHLORIDE) [Suspect]
     Indication: PULMONARY TUBERCULOSIS
     Dosage: ORAL
     Route: 048
     Dates: start: 20041221, end: 20050117
  3. CLARITHROMYCIN [Suspect]
     Indication: PULMONARY TUBERCULOSIS
     Dosage: ORAL
     Route: 048
     Dates: start: 20041221, end: 20050117
  4. MOXIFLOXACIN HCL [Suspect]
     Indication: PULMONARY TUBERCULOSIS
     Dosage: ORAL
     Route: 048
     Dates: start: 20041221, end: 20050117

REACTIONS (7)
  - ATYPICAL MYCOBACTERIAL INFECTION [None]
  - BICYTOPENIA [None]
  - LUNG INFECTION [None]
  - MYOCARDIAL INFARCTION [None]
  - NEUTROPENIA [None]
  - RECTAL HAEMORRHAGE [None]
  - THROMBOCYTOPENIA [None]
